FAERS Safety Report 7105827-3 (Version None)
Quarter: 2010Q4

REPORT INFORMATION
  Report Type: 
  Country: None (occurrence: None)
  Receive Date: 20101110
  Receipt Date: 20101029
  Transmission Date: 20110411
  Serious: Yes (Other)
  Sender: FDA-Public Use
  Company Number: 740411

PATIENT
  Age: 55 Year
  Sex: Female
  Weight: 69.9 kg

DRUGS (7)
  1. CARBOPLATIN [Suspect]
     Indication: OVARIAN CANCER
     Dosage: 665MG, CYCLICAL, INTRAVENOUS (NOT OTHERWISE SPECIFIED)
     Route: 042
     Dates: start: 20100501, end: 20101001
  2. DECADRON [Concomitant]
  3. ZANTAC [Concomitant]
  4. ZOFRAN [Concomitant]
  5. BENADRYL [Concomitant]
  6. ATIVAN [Concomitant]
  7. PACLITAXEL [Concomitant]

REACTIONS (4)
  - EAR PRURITUS [None]
  - ERYTHEMA [None]
  - PRURITUS [None]
  - RASH [None]
